FAERS Safety Report 14873045 (Version 2)
Quarter: 2018Q2

REPORT INFORMATION
  Report Type: Spontaneous
  Country: US (occurrence: US)
  Receive Date: 20180510
  Receipt Date: 20180515
  Transmission Date: 20180711
  Serious: No
  Sender: FDA-Public Use
  Company Number: US-009507513-1805USA003952

PATIENT
  Age: 36 Year
  Sex: Female

DRUGS (10)
  1. ISENTRESS [Suspect]
     Active Substance: RALTEGRAVIR POTASSIUM
     Dosage: TOTAL DAILY DOSE: 800 (UNIT NOT REPORTED)
     Route: 048
  2. LOPINAVIR (+) RITONAVIR [Suspect]
     Active Substance: LOPINAVIR\RITONAVIR
     Dosage: TOTAL DAILY DOSE: 4 *UNIT NOT REPORTED)
     Route: 048
  3. TENOFOVIR DISOPROXIL FUMARATE. [Suspect]
     Active Substance: TENOFOVIR DISOPROXIL FUMARATE
     Dosage: TOTAL DAILY DOSE: 300 (UNIT NOT REPORTED)
     Route: 048
  4. DARUNAVIR [Suspect]
     Active Substance: DARUNAVIR
     Dosage: TOTAL DAILY DOSE: 1200 (UNIT NOT REPORTED)
     Route: 048
  5. ZIDOVUDINE. [Suspect]
     Active Substance: ZIDOVUDINE
     Dosage: TOTAL DAILY DOSE: 2 (UNIT NOT REPORTED)
     Route: 042
  6. ZIDOVUDINE. [Suspect]
     Active Substance: ZIDOVUDINE
     Dosage: TOTAL DAILY DOSE: 1 (UNIT NOT REPORTED)
     Route: 042
  7. LAMIVUDINE. [Suspect]
     Active Substance: LAMIVUDINE
     Dosage: TOTAL DAILY DOSE: 300 (UNIT NOT REPORTED)
     Route: 048
  8. RITONAVIR. [Suspect]
     Active Substance: RITONAVIR
     Dosage: TOTAL DAILY DOSE: 200 (UNIT NOT REPORTED)
     Route: 048
  9. ZIDOVUDINE. [Suspect]
     Active Substance: ZIDOVUDINE
     Dosage: TOTAL DAILY DOSE: 2 (UNIT NOT REPORTED)
     Route: 048
  10. ABACAVIR SULFATE (+) LAMIVUDINE [Suspect]
     Active Substance: ABACAVIR SULFATE\LAMIVUDINE
     Dosage: TOTAL DAILY DOSE: 1 (UNIT NOT REPORTED)
     Route: 048

REACTIONS (2)
  - No adverse event [Unknown]
  - Maternal exposure during pregnancy [Recovered/Resolved]
